FAERS Safety Report 5685034-1 (Version None)
Quarter: 2008Q1

REPORT INFORMATION
  Report Type: 
  Country: None (occurrence: None)
  Receive Date: 20080328
  Receipt Date: 19911016
  Transmission Date: 20080703
  Serious: Yes (Death, Other)
  Sender: FDA-Public Use
  Company Number: FR-ROCHE-98715

PATIENT
  Age: 75 Year
  Sex: Female

DRUGS (1)
  1. ROCEPHIN [Suspect]
     Indication: INFECTION
     Route: 065

REACTIONS (5)
  - AGITATION [None]
  - CONFUSIONAL STATE [None]
  - DEATH [None]
  - ENCEPHALOPATHY [None]
  - TRANCE [None]
